FAERS Safety Report 5340560-X (Version None)
Quarter: 2007Q2

REPORT INFORMATION
  Report Type: 
  Country: None (occurrence: None)
  Receive Date: 20070531
  Receipt Date: 20070521
  Transmission Date: 20071010
  Serious: Yes (Other)
  Sender: FDA-Public Use
  Company Number: DE-PFIZER INC-2007037443

PATIENT
  Age: 13 Year
  Sex: Female

DRUGS (1)
  1. ZITHROMAX [Suspect]
     Indication: UPPER RESPIRATORY TRACT INFECTION
     Dosage: DAILY DOSE:380MG
     Route: 048
     Dates: start: 20070504, end: 20070505

REACTIONS (5)
  - ANXIETY [None]
  - ASTHENIA [None]
  - HEADACHE [None]
  - MUSCLE TWITCHING [None]
  - NAUSEA [None]
